FAERS Safety Report 11239018 (Version 1)
Quarter: 2015Q2

REPORT INFORMATION
  Report Type: Spontaneous
  Country: IN (occurrence: None)
  Receive Date: 20150630
  Receipt Date: 20150630
  Transmission Date: 20150821
  Serious: Yes (Other)
  Sender: FDA-Public Use
  Company Number: AUR-APL-2015-05289

PATIENT
  Age: 50 Year
  Sex: Male

DRUGS (1)
  1. PHENYTOIN. [Suspect]
     Active Substance: PHENYTOIN
     Indication: EPILEPSY

REACTIONS (5)
  - Dysphagia [None]
  - Oesophageal stenosis [None]
  - Chemical injury [None]
  - Gastrointestinal mucosal disorder [None]
  - Wrong technique in drug usage process [None]
